FAERS Safety Report 8887004 (Version 3)
Quarter: 2019Q4

REPORT INFORMATION
  Report Type: Spontaneous
  Country: US (occurrence: US)
  Receive Date: 20121105
  Receipt Date: 20191219
  Transmission Date: 20200122
  Serious: Yes (Other)
  Sender: FDA-Public Use
  Company Number: US-UCBSA-070042

PATIENT
  Age: 22 Year
  Sex: Male

DRUGS (1)
  1. CIMZIA [Suspect]
     Active Substance: CERTOLIZUMAB PEGOL
     Indication: CROHN^S DISEASE
     Dosage: MAINTENANCE
     Dates: start: 20120110

REACTIONS (1)
  - Streptococcal infection [Not Recovered/Not Resolved]

NARRATIVE: CASE EVENT DATE: 20121029
